FAERS Safety Report 10487605 (Version 4)
Quarter: 2015Q2

REPORT INFORMATION
  Report Type: Spontaneous
  Country: US (occurrence: US)
  Receive Date: 20141001
  Receipt Date: 20150630
  Transmission Date: 20150821
  Serious: Yes (Hospitalization, Disabling, Other)
  Sender: FDA-Public Use
  Company Number: US-009507513-1102USA00531

PATIENT
  Sex: Female
  Weight: 62.14 kg

DRUGS (11)
  1. FOSAMAX [Suspect]
     Active Substance: ALENDRONATE SODIUM
     Indication: OSTEOPOROSIS
     Dosage: 70 MG, QW
     Route: 048
     Dates: start: 20020618, end: 200803
  2. ALENDRONATE SODIUM. [Suspect]
     Active Substance: ALENDRONATE SODIUM
     Indication: OSTEOPENIA
     Dosage: 70 MG, UNK
     Route: 048
     Dates: start: 20090128, end: 200909
  3. ALENDRONATE SODIUM. [Suspect]
     Active Substance: ALENDRONATE SODIUM
     Indication: OSTEOPENIA
     Dosage: 70 MG, UNK
     Route: 048
     Dates: start: 20091209, end: 201008
  4. ALENDRONATE SODIUM. [Suspect]
     Active Substance: ALENDRONATE SODIUM
     Indication: OSTEOPOROSIS
     Dosage: 70 MG, UNK
     Route: 048
     Dates: start: 20100826, end: 201008
  5. ALENDRONATE SODIUM. [Suspect]
     Active Substance: ALENDRONATE SODIUM
     Indication: OSTEOPOROSIS
  6. ASACOL [Concomitant]
     Active Substance: MESALAMINE
     Indication: CROHN^S DISEASE
     Route: 048
     Dates: start: 1995
  7. FOSAMAX [Suspect]
     Active Substance: ALENDRONATE SODIUM
     Indication: OSTEOPENIA
     Dosage: 10 MG, QD
     Route: 048
     Dates: start: 19980514
  8. ALENDRONATE SODIUM. [Suspect]
     Active Substance: ALENDRONATE SODIUM
     Indication: OSTEOPENIA
     Dosage: 70 MG, UNK
     Dates: start: 20080922, end: 200901
  9. ALENDRONATE SODIUM. [Suspect]
     Active Substance: ALENDRONATE SODIUM
     Indication: OSTEOPOROSIS
  10. ALENDRONATE SODIUM. [Suspect]
     Active Substance: ALENDRONATE SODIUM
     Indication: OSTEOPENIA
     Dosage: 70 MG, UNK
     Route: 048
     Dates: start: 20080312, end: 200809
  11. ALENDRONATE SODIUM. [Suspect]
     Active Substance: ALENDRONATE SODIUM
     Indication: OSTEOPOROSIS
     Dosage: 70 MG, UNK
     Route: 048
     Dates: start: 20090930, end: 200912

REACTIONS (38)
  - Metastases to bone [Unknown]
  - Colitis [Unknown]
  - Periodontal disease [Unknown]
  - Haematochezia [Unknown]
  - Endometrial adenocarcinoma [Unknown]
  - Nausea [Recovered/Resolved]
  - Osteopenia [Unknown]
  - Osteoarthritis [Unknown]
  - Diarrhoea [Unknown]
  - Meniscus injury [Unknown]
  - Bone disorder [Unknown]
  - Device failure [Recovering/Resolving]
  - Osteoarthritis [Unknown]
  - Femur fracture [Unknown]
  - Large intestine polyp [Unknown]
  - Limb injury [Unknown]
  - Haemoglobin decreased [Unknown]
  - Femur fracture [Recovering/Resolving]
  - Polyp [Unknown]
  - Kyphosis [Unknown]
  - Wound haemorrhage [Recovered/Resolved]
  - Device failure [Unknown]
  - Femur fracture [Recovering/Resolving]
  - Vomiting [Recovered/Resolved]
  - Foot fracture [Unknown]
  - Hepatic cyst [Unknown]
  - Blood cholesterol increased [Unknown]
  - Osteoarthritis [Unknown]
  - Myalgia [Unknown]
  - Hypokalaemia [Recovered/Resolved]
  - Fall [Unknown]
  - Low turnover osteopathy [Unknown]
  - Arthritis [Unknown]
  - Sinus disorder [Unknown]
  - Haemorrhoids [Unknown]
  - Oestrogen deficiency [Unknown]
  - Periostitis [Unknown]
  - Muscle spasms [Unknown]

NARRATIVE: CASE EVENT DATE: 2000
